FAERS Safety Report 4409357-9 (Version None)
Quarter: 2004Q3

REPORT INFORMATION
  Report Type: 
  Country: None (occurrence: None)
  Receive Date: 20040722
  Receipt Date: 20040719
  Transmission Date: 20050211
  Serious: No
  Sender: FDA-Public Use
  Company Number: 04P-167-0263450-00

PATIENT
  Age: 40 Year
  Sex: Female
  Weight: 56.2 kg

DRUGS (2)
  1. MAVIK [Suspect]
     Indication: ESSENTIAL HYPERTENSION
     Dosage: 1 IN 1 D, PER ORAL
     Route: 048
     Dates: start: 20040303, end: 20040420
  2. TELMISARTAN [Concomitant]

REACTIONS (1)
  - CONTUSION [None]
